FAERS Safety Report 10098948 (Version 2)
Quarter: 2014Q2

REPORT INFORMATION
  Report Type: Spontaneous
  Country: CN (occurrence: CN)
  Receive Date: 20140423
  Receipt Date: 20140429
  Transmission Date: 20141212
  Serious: Yes (Disabling)
  Sender: FDA-Public Use
  Company Number: CN-PFIZER INC-2014106990

PATIENT
  Age: 76 Year
  Sex: Male
  Weight: 65 kg

DRUGS (3)
  1. DIFLUCAN [Suspect]
     Indication: FUNGAL INFECTION
     Dosage: 200 MG, 1X/DAY
     Route: 041
     Dates: start: 20130308, end: 20130318
  2. CIPROFLOXACIN [Suspect]
     Indication: ACINETOBACTER INFECTION
     Dosage: UNK
     Dates: start: 201303, end: 20130318
  3. DOXYCYCLINE HYCLATE [Suspect]
     Indication: ACINETOBACTER INFECTION
     Dosage: UNK
     Dates: start: 201303, end: 20130318

REACTIONS (1)
  - Hepatocellular injury [Recovered/Resolved]
